FAERS Safety Report 4305822-3 (Version None)
Quarter: 2004Q1

REPORT INFORMATION
  Report Type: 
  Country: None (occurrence: None)
  Receive Date: 20040225
  Receipt Date: 20020228
  Transmission Date: 20041129
  Serious: Yes (Life-Threatening, Other)
  Sender: FDA-Public Use
  Company Number: 2004S1000464

PATIENT
  Sex: Female

DRUGS (1)
  1. MAXZIDE [Suspect]
     Indication: HYPERTENSION
     Dates: start: 20001206, end: 20010216

REACTIONS (10)
  - BLOOD CREATININE INCREASED [None]
  - BONE DISORDER [None]
  - CARDIAC MURMUR [None]
  - EYE INFECTION [None]
  - MULTIPLE MYELOMA [None]
  - PAIN [None]
  - PATHOLOGICAL FRACTURE [None]
  - RENAL IMPAIRMENT [None]
  - VEIN DISORDER [None]
  - WEIGHT DECREASED [None]
